FAERS Safety Report 15730090 (Version 1)
Quarter: 2018Q4

REPORT INFORMATION
  Report Type: Spontaneous
  Country: US (occurrence: US)
  Receive Date: 20181216
  Receipt Date: 20181216
  Transmission Date: 20190205
  Serious: Yes (Other)
  Sender: FDA-Public Use
  Company Number: None

PATIENT
  Age: 70 Year
  Sex: Male
  Weight: 74.25 kg

DRUGS (8)
  1. HCTZ [Concomitant]
     Active Substance: HYDROCHLOROTHIAZIDE
  2. ENALAPRIL [Concomitant]
     Active Substance: ENALAPRIL
  3. MG [Concomitant]
     Active Substance: MAGNESIUM
  4. KLOR-CON M10 [Concomitant]
     Active Substance: POTASSIUM CHLORIDE
  5. OMEGA Q PLUS [Concomitant]
  6. ATORVASTATIN [Suspect]
     Active Substance: ATORVASTATIN
     Indication: BLOOD CHOLESTEROL INCREASED
     Dosage: ?          QUANTITY:1 TABLET(S);OTHER FREQUENCY:THREE TIMES PER WK;?
     Dates: start: 20181114, end: 20181204
  7. METOPROLOL. [Concomitant]
     Active Substance: METOPROLOL
  8. ASPIRIN. [Concomitant]
     Active Substance: ASPIRIN

REACTIONS (6)
  - Muscle spasms [None]
  - Fatigue [None]
  - Cognitive disorder [None]
  - Urinary retention [None]
  - Heart rate increased [None]
  - Memory impairment [None]

NARRATIVE: CASE EVENT DATE: 20181114
